FAERS Safety Report 19998248 (Version 1)
Quarter: 2021Q4

REPORT INFORMATION
  Report Type: Report from Study
  Country: US (occurrence: US)
  Receive Date: 20211026
  Receipt Date: 20211026
  Transmission Date: 20220304
  Serious: Yes (Other)
  Sender: FDA-Public Use
  Company Number: US-BRISTOL-MYERS SQUIBB COMPANY-BMS-2021-098815

PATIENT
  Age: 59 Year
  Sex: Female
  Weight: 79.37 kg

DRUGS (2)
  1. ABATACEPT [Suspect]
     Active Substance: ABATACEPT
     Indication: Rheumatoid arthritis
     Dosage: UNK, ONCE A MONTH
     Route: 042
     Dates: start: 2015, end: 202010
  2. ABATACEPT [Suspect]
     Active Substance: ABATACEPT
     Dosage: UNK, ONCE A MONTH
     Route: 042

REACTIONS (5)
  - Bone disorder [Unknown]
  - COVID-19 [Unknown]
  - Drug ineffective [Unknown]
  - Wound [Unknown]
  - Drug resistance [Unknown]

NARRATIVE: CASE EVENT DATE: 20201201
